FAERS Safety Report 8136537-1 (Version None)
Quarter: 2012Q1

REPORT INFORMATION
  Report Type: 
  Country: None (occurrence: None)
  Receive Date: 20120214
  Receipt Date: 20120203
  Transmission Date: 20120608
  Serious: Yes (Hospitalization)
  Sender: FDA-Public Use
  Company Number: PHHY2012DE010113

PATIENT
  Sex: Male
  Weight: 18 kg

DRUGS (1)
  1. METHERGINE [Suspect]
     Dosage: UNK
     Route: 048
     Dates: start: 20100410

REACTIONS (1)
  - ACCIDENTAL DRUG INTAKE BY CHILD [None]
